FAERS Safety Report 9613045 (Version 1)
Quarter: 2013Q4

REPORT INFORMATION
  Report Type: Spontaneous
  Country: US (occurrence: None)
  Receive Date: 20131009
  Receipt Date: 20131009
  Transmission Date: 20140711
  Serious: Yes (Death)
  Sender: FDA-Public Use
  Company Number: 2013AP008601

PATIENT
  Age: 31 Year
  Sex: Female

DRUGS (6)
  1. CARVEDILOL TABLETS [Suspect]
  2. VERAPAMIL HYDROCHLORIDE [Suspect]
  3. LISINOPRIL TABLETS [Suspect]
  4. FUROSEMIDE [Suspect]
  5. LEVOTHYROXINE [Suspect]
  6. COCAINE [Suspect]

REACTIONS (2)
  - Completed suicide [None]
  - Drug abuse [None]
